FAERS Safety Report 4293282-0 (Version None)
Quarter: 2004Q1

REPORT INFORMATION
  Report Type: 
  Country: None (occurrence: None)
  Receive Date: 20040210
  Receipt Date: 20040206
  Transmission Date: 20041129
  Serious: Yes (Death)
  Sender: FDA-Public Use
  Company Number: USA-2003-0007706

PATIENT
  Age: 21 Year
  Sex: Female

DRUGS (1)
  1. OXYCODONE HYDROCHLORIDE (SIMILAR TO NDA 20-553)(OXYDODONE HYDROCHLORID [Suspect]

REACTIONS (2)
  - ACCIDENT [None]
  - INJURY [None]
